FAERS Safety Report 6915505-9 (Version None)
Quarter: 2010Q3

REPORT INFORMATION
  Report Type: 
  Country: None (occurrence: None)
  Receive Date: 20100804
  Receipt Date: 20100723
  Transmission Date: 20110219
  Serious: Yes (Other)
  Sender: FDA-Public Use
  Company Number: 2010AP001597

PATIENT
  Age: 9 Year
  Sex: Male

DRUGS (8)
  1. CYCLOSPORINE [Suspect]
     Indication: GRAFT VERSUS HOST DISEASE
  2. PHENYTOIN [Suspect]
     Indication: CONVULSION
  3. BUSULFAN [Concomitant]
  4. ANTITHYMOCYTE [Concomitant]
  5. IMMUNE GLOBULIN NOS [Concomitant]
  6. MESNA [Concomitant]
  7. CYCLOPHOSPHAMIDE [Concomitant]
  8. PREDNISONE [Concomitant]

REACTIONS (2)
  - ACUTE GRAFT VERSUS HOST DISEASE IN INTESTINE [None]
  - PLATELET COUNT DECREASED [None]
